FAERS Safety Report 10488973 (Version 1)
Quarter: 2014Q4

REPORT INFORMATION
  Report Type: Spontaneous
  Country: US (occurrence: None)
  Receive Date: 20141001
  Receipt Date: 20141001
  Transmission Date: 20150528
  Serious: Yes (Life-Threatening, Hospitalization)
  Sender: FDA-Public Use
  Company Number: None

PATIENT
  Age: 63 Year
  Sex: Male
  Weight: 121.4 kg

DRUGS (2)
  1. WARFARIN [Suspect]
     Active Substance: WARFARIN
     Indication: PULMONARY EMBOLISM
     Route: 048
     Dates: start: 20120619, end: 20140804
  2. ENOXAPARIN [Suspect]
     Active Substance: ENOXAPARIN
     Indication: DRUG THERAPY
     Route: 058
     Dates: start: 20140714, end: 20140804

REACTIONS (4)
  - Haemorrhage [None]
  - Gastric haemorrhage [None]
  - International normalised ratio increased [None]
  - Anaemia [None]

NARRATIVE: CASE EVENT DATE: 20140804
